FAERS Safety Report 7556901-9 (Version None)
Quarter: 2011Q2

REPORT INFORMATION
  Report Type: 
  Country: None (occurrence: None)
  Receive Date: 20110617
  Receipt Date: 20110613
  Transmission Date: 20111010
  Serious: Yes (Hospitalization)
  Sender: FDA-Public Use
  Company Number: DL2011-0475

PATIENT
  Age: 32 Year
  Sex: Female

DRUGS (3)
  1. DOXYCYCLINE [Concomitant]
  2. MISOPROSTOL [Suspect]
     Dosage: 800 MCG, BUCCAL
     Route: 002
     Dates: start: 20110525
  3. MIFEPRISTONE (MIFEPREX) [Suspect]
     Indication: ABORTION INDUCED
     Dosage: 200 MG, ORAL
     Route: 048
     Dates: start: 20110524

REACTIONS (6)
  - NEUTROPENIA [None]
  - ABDOMINAL PAIN [None]
  - DIARRHOEA [None]
  - ENDOMETRITIS [None]
  - PYREXIA [None]
  - MALAISE [None]
